FAERS Safety Report 9454052 (Version 1)
Quarter: 2013Q3

REPORT INFORMATION
  Report Type: Spontaneous
  Country: US (occurrence: US)
  Receive Date: 20130812
  Receipt Date: 20130812
  Transmission Date: 20140515
  Serious: No
  Sender: FDA-Public Use
  Company Number: US-THROMBOGENICS INC-JET-2013-150

PATIENT
  Sex: 0

DRUGS (5)
  1. JETREA [Suspect]
     Indication: VITREOUS ADHESIONS
     Dosage: 2.5 MG, ONE TIME DOSE
     Route: 031
     Dates: start: 20130514, end: 20130514
  2. NAPROXEN [Concomitant]
     Indication: PRODUCT USED FOR UNKNOWN INDICATION
     Dosage: 500 MG, BID
  3. RANITIDINE [Concomitant]
     Indication: PRODUCT USED FOR UNKNOWN INDICATION
     Dosage: 150 MG, BID
  4. CO-DIOVAN [Concomitant]
     Indication: PRODUCT USED FOR UNKNOWN INDICATION
     Dosage: 80/125 MG, QD
  5. LIPITOR [Concomitant]
     Indication: PRODUCT USED FOR UNKNOWN INDICATION
     Dosage: 20 MG, QD

REACTIONS (6)
  - Vitreous floaters [Not Recovered/Not Resolved]
  - Metamorphopsia [Recovered/Resolved]
  - Visual acuity reduced transiently [Recovered/Resolved]
  - Eye pain [Recovered/Resolved]
  - Photopsia [Not Recovered/Not Resolved]
  - Retinal oedema [Unknown]
